FAERS Safety Report 7343275-1 (Version None)
Quarter: 2011Q1

REPORT INFORMATION
  Report Type: 
  Country: None (occurrence: None)
  Receive Date: 20110310
  Receipt Date: 20110301
  Transmission Date: 20110831
  Serious: Yes (Other)
  Sender: FDA-Public Use
  Company Number: IT-SANOFI-AVENTIS-2011SA012507

PATIENT
  Age: 72 Year
  Sex: Female

DRUGS (9)
  1. ENAPREN [Concomitant]
     Dosage: DOSE:1 UNIT(S)
     Route: 048
  2. LUVION [Concomitant]
     Dosage: DOSE:1 UNIT(S)
     Route: 048
  3. FERROGRAD [Concomitant]
     Route: 048
  4. METFORAL [Concomitant]
     Route: 065
  5. MULTAQ [Suspect]
     Indication: ATRIAL FIBRILLATION
     Route: 048
     Dates: start: 20101118, end: 20110209
  6. HYDROCHLOROTHIAZIDE/OLMESARTAN MEDOXOMIL [Concomitant]
     Dosage: DOSE:1 UNIT(S)
     Route: 048
  7. CLONIDINE HYDROCHLORIDE [Concomitant]
     Route: 048
  8. SIVASTIN [Concomitant]
     Dosage: DOSE:1 UNIT(S)
     Route: 048
  9. COUMADIN [Concomitant]
     Route: 065

REACTIONS (4)
  - GAMMA-GLUTAMYLTRANSFERASE INCREASED [None]
  - ABDOMINAL PAIN UPPER [None]
  - FLATULENCE [None]
  - CHOLESTASIS [None]
